FAERS Safety Report 6902753-7 (Version None)
Quarter: 2010Q3

REPORT INFORMATION
  Report Type: 
  Country: None (occurrence: None)
  Receive Date: 20100803
  Receipt Date: 20080626
  Transmission Date: 20110219
  Serious: No
  Sender: FDA-Public Use
  Company Number: US-PFIZER INC-2008016050

PATIENT
  Sex: Female
  Weight: 57.6 kg

DRUGS (4)
  1. LYRICA [Suspect]
     Dates: start: 20071201
  2. NORVASC [Concomitant]
  3. HYZAAR [Concomitant]
  4. ALL OTHER THERAPEUTIC PRODUCTS [Concomitant]

REACTIONS (6)
  - BODY HEIGHT DECREASED [None]
  - CARDIOVASCULAR DISORDER [None]
  - DRUG INEFFECTIVE [None]
  - FATIGUE [None]
  - HYPOAESTHESIA [None]
  - SOMNOLENCE [None]
